FAERS Safety Report 6159687-8 (Version None)
Quarter: 2009Q2

REPORT INFORMATION
  Report Type: 
  Country: None (occurrence: None)
  Receive Date: 20090415
  Receipt Date: 20090401
  Transmission Date: 20091009
  Serious: Yes (Death, Other)
  Sender: FDA-Public Use
  Company Number: RENA-1000158

PATIENT
  Age: 49 Year
  Sex: Male
  Weight: 61 kg

DRUGS (8)
  1. RENAGEL [Suspect]
     Indication: HYPERPHOSPHATAEMIA
     Dosage: 800 MG, TID, ORAL
     Route: 048
     Dates: start: 20070701, end: 20080127
  2. BISOPROLOL FUMARATE AND HYDROCHLOROTHIAZIDE [Concomitant]
  3. RAMIPRIL [Concomitant]
  4. MOLSIDOMIN (MOLSIDOMINE) [Concomitant]
  5. ISOSORBIDE MONONITRATE [Concomitant]
  6. TORSEMIDE [Concomitant]
  7. LERCANIDIPINE [Concomitant]
  8. CALCIUM ACETATE (CALCIUM ACETATE) [Concomitant]

REACTIONS (6)
  - CARDIOPULMONARY FAILURE [None]
  - COGNITIVE DISORDER [None]
  - HYPERPHOSPHATAEMIA [None]
  - HYPERVOLAEMIA [None]
  - TREATMENT NONCOMPLIANCE [None]
  - VENTRICULAR FIBRILLATION [None]
